FAERS Safety Report 4423756-0 (Version None)
Quarter: 2004Q3

REPORT INFORMATION
  Report Type: 
  Country: None (occurrence: None)
  Receive Date: 20040714
  Receipt Date: 20040607
  Transmission Date: 20050211
  Serious: Yes (Other)
  Sender: FDA-Public Use
  Company Number: HQWYE409210JUN04

PATIENT
  Age: 21 Year
  Sex: Male
  Weight: 54.48 kg

DRUGS (2)
  1. ALAVERT [Suspect]
     Indication: HYPERSENSITIVITY
     Dosage: 1 TABLET, ORAL; ^TOOK ONE TABLET ON 15-MAY-2004^
     Route: 048
  2. PLAQUENIL [Concomitant]

REACTIONS (4)
  - DIZZINESS [None]
  - NAUSEA [None]
  - SALIVARY HYPERSECRETION [None]
  - STOMACH DISCOMFORT [None]
